FAERS Safety Report 6443538-8 (Version None)
Quarter: 2009Q4

REPORT INFORMATION
  Report Type: 
  Country: None (occurrence: None)
  Receive Date: 20091112
  Receipt Date: 20091028
  Transmission Date: 20100525
  Serious: Yes (Hospitalization)
  Sender: FDA-Public Use
  Company Number: 2009BM000267

PATIENT
  Age: 4 Year
  Sex: Male
  Weight: 23 kg

DRUGS (9)
  1. NAGLAZYME [Suspect]
     Indication: MUCOPOLYSACCHARIDOSIS VI
     Dosage: 20 MG;QW;IVDRIP
     Route: 041
     Dates: start: 20080916
  2. FLEBCORTID [Concomitant]
  3. ACETAMINOPHEN [Concomitant]
  4. DEXCHLORPHENIRAMINE MALEATE [Concomitant]
  5. CHLORAL HYDRATE [Concomitant]
  6. CAPTOPRIL [Concomitant]
  7. ATROVENT [Concomitant]
  8. FENOTEROL HYDROBROMIDE [Concomitant]
  9. TERBUTALINE SULFATE [Concomitant]

REACTIONS (6)
  - AGITATION [None]
  - BRONCHOPNEUMONIA [None]
  - DYSPNOEA [None]
  - HYPERCAPNIA [None]
  - INFUSION RELATED REACTION [None]
  - MUSCLE SPASTICITY [None]
